FAERS Safety Report 21999693 (Version 1)
Quarter: 2023Q1

REPORT INFORMATION
  Report Type: Report from Study
  Country: DE (occurrence: DE)
  Receive Date: 20230216
  Receipt Date: 20230216
  Transmission Date: 20230418
  Serious: Yes (Hospitalization)
  Sender: FDA-Public Use
  Company Number: DE-ROCHE-3270741

PATIENT
  Age: 16 Year
  Sex: Female
  Weight: 61 kg

DRUGS (4)
  1. METHOTREXATE [Suspect]
     Active Substance: METHOTREXATE
     Indication: Juvenile idiopathic arthritis
     Dosage: UNK, QW
     Route: 058
     Dates: start: 20191203
  2. TOCILIZUMAB [Suspect]
     Active Substance: TOCILIZUMAB
     Indication: Juvenile idiopathic arthritis
     Dosage: 162 MILLIGRAM, BIWEEKLY
     Route: 058
     Dates: start: 20210921, end: 20221020
  3. ACETAMINOPHEN [Concomitant]
     Active Substance: ACETAMINOPHEN
     Indication: Juvenile idiopathic arthritis
     Dosage: UNK UNK, QD
     Route: 065
     Dates: start: 20220505
  4. TRAMADOL [Concomitant]
     Active Substance: TRAMADOL
     Indication: Depression
     Dosage: UNK UNK, QD
     Route: 065
     Dates: start: 20220801

REACTIONS (2)
  - Juvenile idiopathic arthritis [Recovering/Resolving]
  - Drug ineffective [Unknown]

NARRATIVE: CASE EVENT DATE: 20220801
